FAERS Safety Report 14972926 (Version 1)
Quarter: 2018Q2

REPORT INFORMATION
  Report Type: Spontaneous
  Country: US (occurrence: US)
  Receive Date: 20180605
  Receipt Date: 20180605
  Transmission Date: 20180711
  Serious: No
  Sender: FDA-Public Use
  Company Number: US-PFIZER INC-2018226558

PATIENT
  Age: 63 Year
  Sex: Female
  Weight: 72.56 kg

DRUGS (5)
  1. NIFEDICAL XL [Concomitant]
     Active Substance: NIFEDIPINE
     Route: 048
  2. PARAPLATIN [Concomitant]
     Active Substance: CARBOPLATIN
  3. TAXOL [Concomitant]
     Active Substance: PACLITAXEL
  4. DOCETAXEL. [Suspect]
     Active Substance: DOCETAXEL
     Indication: BREAST CANCER FEMALE
     Dosage: UNK UNK, CYCLIC, EVERY WEEK (06 CYCLES)
     Dates: start: 201112, end: 201205
  5. HERCEPTIN [Concomitant]
     Active Substance: TRASTUZUMAB
     Dosage: UNK
     Dates: start: 201112, end: 201205

REACTIONS (6)
  - Hair colour changes [Unknown]
  - Alopecia [Not Recovered/Not Resolved]
  - Madarosis [Not Recovered/Not Resolved]
  - Neoplasm recurrence [Not Recovered/Not Resolved]
  - Hair disorder [Unknown]
  - Hair texture abnormal [Unknown]
